FAERS Safety Report 18851459 (Version 7)
Quarter: 2021Q4

REPORT INFORMATION
  Report Type: Report from Study
  Country: JP (occurrence: JP)
  Receive Date: 20210205
  Receipt Date: 20211026
  Transmission Date: 20220303
  Serious: Yes (Other)
  Sender: FDA-Public Use
  Company Number: JP-CHUGAI-A2020050343ROCHE

PATIENT
  Age: 38 Year
  Sex: Female
  Weight: 61 kg

DRUGS (37)
  1. BEVACIZUMAB [Suspect]
     Active Substance: BEVACIZUMAB
     Indication: Colon cancer
     Dosage: DAY1
     Route: 041
     Dates: start: 20201111, end: 20201111
  2. BEVACIZUMAB [Suspect]
     Active Substance: BEVACIZUMAB
     Dosage: DAY1
     Route: 041
     Dates: start: 20201208, end: 20210216
  3. BEVACIZUMAB [Suspect]
     Active Substance: BEVACIZUMAB
     Dosage: DAY1
     Route: 041
     Dates: start: 20210323, end: 20210323
  4. BEVACIZUMAB [Suspect]
     Active Substance: BEVACIZUMAB
     Dosage: DAY1
     Route: 041
     Dates: start: 20210420, end: 20210420
  5. IRINOTECAN HYDROCHLORIDE [Concomitant]
     Active Substance: IRINOTECAN HYDROCHLORIDE
     Indication: Colon cancer
     Dosage: DAY1
     Route: 041
     Dates: start: 20201111, end: 20201111
  6. IRINOTECAN HYDROCHLORIDE [Concomitant]
     Active Substance: IRINOTECAN HYDROCHLORIDE
     Dosage: DAY1
     Route: 041
     Dates: start: 20201208
  7. IRINOTECAN HYDROCHLORIDE [Concomitant]
     Active Substance: IRINOTECAN HYDROCHLORIDE
     Dosage: DAY1
     Route: 041
     Dates: start: 20210323
  8. OXALIPLATIN [Concomitant]
     Active Substance: OXALIPLATIN
     Route: 041
     Dates: start: 20201111
  9. OXALIPLATIN [Concomitant]
     Active Substance: OXALIPLATIN
     Route: 041
     Dates: start: 20201208
  10. OXALIPLATIN [Concomitant]
     Active Substance: OXALIPLATIN
     Route: 041
     Dates: start: 20210323
  11. FLUOROURACIL [Concomitant]
     Active Substance: FLUOROURACIL
     Indication: Colon cancer
     Dosage: UNCERTAIN DOSAGE AND DAY1
     Route: 040
     Dates: start: 20201111, end: 20201111
  12. FLUOROURACIL [Concomitant]
     Active Substance: FLUOROURACIL
     Dosage: DAY1-3
     Route: 041
     Dates: start: 20201111, end: 20201113
  13. FLUOROURACIL [Concomitant]
     Active Substance: FLUOROURACIL
     Dosage: UNCERTAIN DOSAGE AND DAY1
     Route: 040
     Dates: start: 20201208
  14. FLUOROURACIL [Concomitant]
     Active Substance: FLUOROURACIL
     Dosage: UNCERTAIN DOSAGE AND DAY1-3
     Route: 041
     Dates: start: 20201208
  15. FLUOROURACIL [Concomitant]
     Active Substance: FLUOROURACIL
     Dosage: UNCERTAIN DOSAGE AND DAY1-3
     Route: 040
     Dates: start: 20210323, end: 20210325
  16. FLUOROURACIL [Concomitant]
     Active Substance: FLUOROURACIL
     Dosage: UNCERTAIN DOSAGE AND DAY1-3
     Route: 041
     Dates: start: 20210323, end: 20210325
  17. FLUOROURACIL [Concomitant]
     Active Substance: FLUOROURACIL
     Dosage: UNCERTAIN DOSAGE AND DAY1-3
     Route: 040
     Dates: start: 20210420, end: 20210422
  18. FLUOROURACIL [Concomitant]
     Active Substance: FLUOROURACIL
     Dosage: UNCERTAIN DOSAGE AND DAY1-3
     Route: 041
     Dates: start: 20210420, end: 20210422
  19. LEVOLEUCOVORIN CALCIUM [Concomitant]
     Active Substance: LEVOLEUCOVORIN CALCIUM
     Indication: Colon cancer
     Dosage: DAY1
     Route: 041
     Dates: start: 20201111, end: 20201111
  20. LEVOLEUCOVORIN CALCIUM [Concomitant]
     Active Substance: LEVOLEUCOVORIN CALCIUM
     Dosage: DAY1
     Route: 041
     Dates: start: 20201208, end: 20210216
  21. LEVOLEUCOVORIN CALCIUM [Concomitant]
     Active Substance: LEVOLEUCOVORIN CALCIUM
     Dosage: DAY1
     Route: 041
     Dates: start: 20210323, end: 20210323
  22. LEVOLEUCOVORIN CALCIUM [Concomitant]
     Active Substance: LEVOLEUCOVORIN CALCIUM
     Dosage: DAY1
     Route: 041
     Dates: start: 20210420, end: 20210420
  23. PALONOSETRON HYDROCHLORIDE [Concomitant]
     Active Substance: PALONOSETRON HYDROCHLORIDE
     Dosage: DAY1
     Route: 042
     Dates: start: 20201111, end: 20201111
  24. PALONOSETRON HYDROCHLORIDE [Concomitant]
     Active Substance: PALONOSETRON HYDROCHLORIDE
     Dosage: DAY1
     Route: 042
     Dates: start: 20201208
  25. PALONOSETRON HYDROCHLORIDE [Concomitant]
     Active Substance: PALONOSETRON HYDROCHLORIDE
     Dosage: DAY1
     Route: 042
     Dates: start: 20210323, end: 20210323
  26. DEXAMETHASONE SODIUM PHOSPHATE [Concomitant]
     Active Substance: DEXAMETHASONE SODIUM PHOSPHATE
     Dosage: DAY1
     Route: 042
     Dates: start: 20201111, end: 20201111
  27. DEXAMETHASONE SODIUM PHOSPHATE [Concomitant]
     Active Substance: DEXAMETHASONE SODIUM PHOSPHATE
     Dosage: DAY1
     Route: 042
     Dates: start: 20201208
  28. DEXAMETHASONE SODIUM PHOSPHATE [Concomitant]
     Active Substance: DEXAMETHASONE SODIUM PHOSPHATE
     Dosage: DAY1
     Route: 042
     Dates: start: 20210323
  29. DEXAMETHASONE [Concomitant]
     Active Substance: DEXAMETHASONE
     Dosage: DAY2-4
     Route: 048
     Dates: start: 20201112, end: 20201114
  30. DEXAMETHASONE [Concomitant]
     Active Substance: DEXAMETHASONE
     Dosage: DAY2-4
     Route: 048
     Dates: start: 20201209
  31. DEXAMETHASONE [Concomitant]
     Active Substance: DEXAMETHASONE
     Dosage: DAY2-4
     Route: 048
     Dates: start: 20210324
  32. APREPITANT [Concomitant]
     Active Substance: APREPITANT
     Dosage: DAY1
     Route: 048
     Dates: start: 20201111, end: 20201111
  33. APREPITANT [Concomitant]
     Active Substance: APREPITANT
     Dosage: DAY2-3
     Route: 048
     Dates: start: 20201112, end: 20201113
  34. APREPITANT [Concomitant]
     Active Substance: APREPITANT
     Dosage: DAY1
     Route: 048
     Dates: start: 20201208
  35. APREPITANT [Concomitant]
     Active Substance: APREPITANT
     Dosage: DAY2-3
     Route: 048
     Dates: start: 20201209
  36. APREPITANT [Concomitant]
     Active Substance: APREPITANT
     Dosage: DAY2-3
     Route: 048
     Dates: start: 20210323
  37. APREPITANT [Concomitant]
     Active Substance: APREPITANT
     Dosage: DAY2-3
     Route: 048
     Dates: start: 20210324, end: 20210325

REACTIONS (4)
  - Alanine aminotransferase increased [Recovered/Resolved]
  - Aspartate aminotransferase increased [Unknown]
  - Neutrophil count decreased [Recovered/Resolved]
  - White blood cell count decreased [Recovered/Resolved]

NARRATIVE: CASE EVENT DATE: 20201118
